FAERS Safety Report 16100154 (Version 2)
Quarter: 2019Q1

REPORT INFORMATION
  Report Type: Spontaneous
  Country: GB (occurrence: GB)
  Receive Date: 20190321
  Receipt Date: 20190327
  Transmission Date: 20190418
  Serious: Yes (Other)
  Sender: FDA-Public Use
  Company Number: GB-PFIZER INC-2019117480

PATIENT
  Age: 82 Year
  Sex: Male

DRUGS (2)
  1. ZOLEDRONIC ACID [Suspect]
     Active Substance: ZOLEDRONIC ACID
     Indication: PROSTATE CANCER
  2. ZOLEDRONIC ACID [Suspect]
     Active Substance: ZOLEDRONIC ACID
     Indication: METASTASES TO BONE
     Dosage: 4 MG, MONTHLY(WITH A FREQUENCY OF 4 WEEKS OVER 12 MONTHS, INFUSIONS)
     Route: 042

REACTIONS (4)
  - Fistula discharge [Recovered/Resolved]
  - Osteonecrosis of jaw [Recovering/Resolving]
  - Oral cavity fistula [Recovered/Resolved]
  - Renal impairment [Unknown]
